FAERS Safety Report 6405056-2 (Version None)
Quarter: 2009Q4

REPORT INFORMATION
  Report Type: 
  Country: None (occurrence: None)
  Receive Date: 20091019
  Receipt Date: 20091007
  Transmission Date: 20100525
  Serious: Yes (Life-Threatening)
  Sender: FDA-Public Use
  Company Number: FR-PFIZER INC-2009279358

PATIENT
  Age: 84 Year

DRUGS (8)
  1. TRIFLUCAN [Suspect]
     Dosage: 50 MG, 2X/DAY
     Route: 048
  2. PREVISCAN [Suspect]
     Dosage: 10 MG, 1X/DAY
     Route: 048
  3. CARDENSIEL [Concomitant]
  4. HYDROCORTISONE [Concomitant]
     Dosage: 5 MG, 1X/DAY
  5. FENOFIBRATE [Concomitant]
     Dosage: UNK
  6. DEPAKENE [Concomitant]
  7. NEXIUM [Concomitant]
  8. ADANCOR [Concomitant]

REACTIONS (1)
  - SUBDURAL HAEMATOMA [None]
